FAERS Safety Report 7059768-0 (Version None)
Quarter: 2010Q4

REPORT INFORMATION
  Report Type: 
  Country: None (occurrence: None)
  Receive Date: 20101025
  Receipt Date: 20101018
  Transmission Date: 20110411
  Serious: Yes (Hospitalization, Other)
  Sender: FDA-Public Use
  Company Number: JP-PFIZER INC-2010106769

PATIENT
  Age: 26 Year
  Sex: Female
  Weight: 49 kg

DRUGS (5)
  1. CHAMPIX [Suspect]
     Indication: SMOKING CESSATION THERAPY
     Dosage: 0.5 MG, 1X/DAY
     Route: 048
     Dates: start: 20100729, end: 20100731
  2. CHAMPIX [Suspect]
     Dosage: 0.5 MG, 2X/DAY
     Route: 048
     Dates: start: 20100801, end: 20100804
  3. CHAMPIX [Suspect]
     Dosage: 1 MG, 2X/DAY
     Route: 048
     Dates: start: 20100805, end: 20100814
  4. ALPRAZOLAM [Suspect]
     Indication: INSOMNIA
     Dosage: 20 MG, 1X/DAY
     Route: 048
     Dates: start: 20100729, end: 20100813
  5. PAXIL [Suspect]
     Indication: INSOMNIA
     Dosage: 10 MG, 1X/DAY
     Route: 048
     Dates: start: 20100729, end: 20100802

REACTIONS (1)
  - ERYTHEMA MULTIFORME [None]
